FAERS Safety Report 5165610-5 (Version None)
Quarter: 2006Q4

REPORT INFORMATION
  Report Type: 
  Country: None (occurrence: None)
  Receive Date: 20061206
  Receipt Date: 20061115
  Transmission Date: 20070319
  Serious: Yes (Life-Threatening, Disabling, Other)
  Sender: FDA-Public Use
  Company Number: AR-BRISTOL-MYERS SQUIBB COMPANY-13591177

PATIENT
  Age: 25 Year
  Sex: Male

DRUGS (3)
  1. STOCRIN [Suspect]
     Route: 048
  2. LAMIVUDINE [Concomitant]
     Indication: HIV INFECTION
  3. ZIDOVUDINE [Concomitant]
     Indication: HIV INFECTION

REACTIONS (5)
  - APHASIA [None]
  - GLIOSIS [None]
  - GRAND MAL CONVULSION [None]
  - HEMIPARESIS [None]
  - IMMUNE RECONSTITUTION SYNDROME [None]
